FAERS Safety Report 8171743-1 (Version None)
Quarter: 2012Q1

REPORT INFORMATION
  Report Type: 
  Country: None (occurrence: None)
  Receive Date: 20120228
  Receipt Date: 20100312
  Transmission Date: 20120608
  Serious: Yes (Other)
  Sender: FDA-Public Use
  Company Number: CA-GLAXOSMITHKLINE-A0849851A

PATIENT
  Sex: Female

DRUGS (6)
  1. XELODA [Suspect]
     Indication: PRODUCT USED FOR UNKNOWN INDICATION
     Route: 065
     Dates: end: 20120216
  2. ASAPHEN [Concomitant]
  3. CALCIUM [Concomitant]
  4. TYKERB [Suspect]
     Indication: BREAST CANCER METASTATIC
     Dosage: 1250MG PER DAY
     Route: 048
     Dates: start: 20100120, end: 20120216
  5. VITAMIN D [Concomitant]
  6. MICARDIS [Concomitant]

REACTIONS (4)
  - ERYTHEMA [None]
  - SKIN EXFOLIATION [None]
  - NEOPLASM MALIGNANT [None]
  - RASH MACULAR [None]
